FAERS Safety Report 18191392 (Version 1)
Quarter: 2020Q3

REPORT INFORMATION
  Report Type: Spontaneous
  Country: US (occurrence: US)
  Receive Date: 20200824
  Receipt Date: 20200824
  Transmission Date: 20201103
  Serious: Yes (Disabling)
  Sender: FDA-Public Use
  Company Number: None

PATIENT
  Age: 31 Year
  Sex: Female
  Weight: 90 kg

DRUGS (1)
  1. SCOPOLAMINE TRANSDERMAL LATXG [Suspect]
     Active Substance: SCOPOLAMINE
     Indication: MOTION SICKNESS
     Dosage: ?          QUANTITY:1 PATCH(ES);OTHER FREQUENCY:1 EVERY 3 DAYS;?
     Route: 062
     Dates: start: 20200820, end: 20200823

REACTIONS (5)
  - Vision blurred [None]
  - Vomiting [None]
  - Dizziness [None]
  - Mydriasis [None]
  - Nausea [None]

NARRATIVE: CASE EVENT DATE: 20200824
